FAERS Safety Report 8027413-3 (Version None)
Quarter: 2012Q1

REPORT INFORMATION
  Report Type: 
  Country: None (occurrence: None)
  Receive Date: 20120105
  Receipt Date: 20120105
  Transmission Date: 20120608
  Serious: Yes (Hospitalization)
  Sender: FDA-Public Use
  Company Number: None

PATIENT
  Sex: Male
  Weight: 76.4 kg

DRUGS (4)
  1. MERCAPTOPURINE [Suspect]
     Dosage: 1150 MG
  2. METHOTREXATE [Suspect]
     Dosage: 50 MG
  3. VINCRISTINE SULFATE [Suspect]
     Dosage: 2 MG
  4. DEXAMETHASONE TAB [Suspect]
     Dosage: 50 MG

REACTIONS (2)
  - BODY TEMPERATURE INCREASED [None]
  - LEUKAEMIA RECURRENT [None]
